FAERS Safety Report 7676933-X (Version None)
Quarter: 2011Q3

REPORT INFORMATION
  Report Type: 
  Country: None (occurrence: None)
  Receive Date: 20110811
  Receipt Date: 20110728
  Transmission Date: 20111222
  Serious: Yes (Other)
  Sender: FDA-Public Use
  Company Number: JP-ELI_LILLY_AND_COMPANY-JP201105007485

PATIENT
  Age: 75 Year
  Sex: Female

DRUGS (1)
  1. FORTEO [Suspect]
     Dosage: UNK
     Route: 058
     Dates: start: 20110101

REACTIONS (5)
  - DEVICE DIFFICULT TO USE [None]
  - LIMB OPERATION [None]
  - INJECTION SITE HAEMATOMA [None]
  - STRESS [None]
  - INSOMNIA [None]
